FAERS Safety Report 9851155 (Version 1)
Quarter: 2014Q1

REPORT INFORMATION
  Report Type: Spontaneous
  Country: US (occurrence: US)
  Receive Date: 20140128
  Receipt Date: 20140128
  Transmission Date: 20141002
  Serious: Yes (Hospitalization)
  Sender: FDA-Public Use
  Company Number: US-SANOFI-AVENTIS-2013SA008392

PATIENT
  Age: 60 Year
  Sex: Male
  Weight: 139 kg

DRUGS (31)
  1. LASIX [Suspect]
     Indication: CARDIAC FAILURE CONGESTIVE
     Route: 048
     Dates: start: 20120203
  2. BLINDED THERAPY [Suspect]
     Indication: RHEUMATOID ARTHRITIS
     Dosage: AT HIGH DOSE ORALLY 3 TIMES A DAY ON 13APR-2010
     Dates: start: 20100413, end: 20120913
  3. BLINDED THERAPY [Suspect]
     Indication: OSTEOARTHRITIS
     Dosage: AT HIGH DOSE ORALLY 3 TIMES A DAY ON 13APR-2010
     Dates: start: 20100413, end: 20120913
  4. COREG [Suspect]
     Indication: HYPERTENSION
     Route: 048
     Dates: start: 20120909
  5. ZESTRIL [Suspect]
     Indication: HYPERTENSION
     Route: 048
     Dates: start: 20120909
  6. TAMSULOSIN HYDROCHLORIDE [Suspect]
     Indication: BENIGN PROSTATIC HYPERPLASIA
     Route: 048
     Dates: start: 201208
  7. NEXIUM [Concomitant]
     Indication: PROPHYLAXIS
     Dates: start: 20100413, end: 20120913
  8. AMBIEN [Concomitant]
     Indication: SLEEP DISORDER
  9. PROSCAR [Concomitant]
  10. VALIUM [Concomitant]
     Indication: ANXIETY
  11. HUMULIN R [Concomitant]
  12. DELTASONE [Concomitant]
  13. ROFLUMILAST [Concomitant]
  14. FLONASE [Concomitant]
     Indication: HYPERSENSITIVITY
  15. SALBUTAMOL [Concomitant]
     Indication: CHRONIC OBSTRUCTIVE PULMONARY DISEASE
  16. NIZORAL [Concomitant]
     Indication: PRURITUS
  17. XYLOCAINE [Concomitant]
  18. SYNTHROID [Concomitant]
     Indication: HYPOTHYROIDISM
  19. DULERA IN [Concomitant]
  20. METOCLOPRAMIDE [Concomitant]
  21. DUONEB [Concomitant]
  22. PLAVIX [Concomitant]
  23. CYMBALTA [Concomitant]
  24. SPIRIVA [Concomitant]
  25. ASPIRIN [Concomitant]
  26. NORCO [Concomitant]
  27. CLARITIN [Concomitant]
     Indication: SEASONAL ALLERGY
  28. FISH OIL [Concomitant]
  29. VYTORIN [Concomitant]
  30. CORDARONE [Concomitant]
  31. FLORINEF [Concomitant]

REACTIONS (1)
  - Hypotension [Unknown]
